FAERS Safety Report 5532656-4 (Version None)
Quarter: 2007Q4

REPORT INFORMATION
  Report Type: 
  Country: None (occurrence: None)
  Receive Date: 20071203
  Receipt Date: 20071120
  Transmission Date: 20080405
  Serious: Yes (Death, Hospitalization)
  Sender: FDA-Public Use
  Company Number: FR-GENENTECH-251942

PATIENT
  Sex: Male

DRUGS (6)
  1. MABTHERA [Suspect]
     Indication: LYMPHOMA
     Dosage: 700 MG, UNK
     Route: 042
     Dates: start: 20070816
  2. CYCLOPHOSPHAMIDE [Concomitant]
     Indication: LYMPHOMA
     Dosage: UNK, UNKNOWN
     Route: 065
  3. ADRIAMYCIN PFS [Concomitant]
     Indication: LYMPHOMA
     Dosage: UNK, UNKNOWN
     Route: 065
  4. VINCRISTINE [Concomitant]
     Indication: LYMPHOMA
     Dosage: UNK, UNKNOWN
     Route: 065
  5. PREDNISONE TAB [Concomitant]
     Indication: LYMPHOMA
     Dosage: UNK, UNKNOWN
     Route: 065
  6. CARDIOXANE [Concomitant]
     Indication: DRUG USE FOR UNKNOWN INDICATION

REACTIONS (1)
  - HYPERTENSIVE ENCEPHALOPATHY [None]
